FAERS Safety Report 13876553 (Version 2)
Quarter: 2017Q3

REPORT INFORMATION
  Report Type: Report from Study
  Country: AR (occurrence: AR)
  Receive Date: 20170817
  Receipt Date: 20170928
  Transmission Date: 20171127
  Serious: Yes (Death, Hospitalization, Other)
  Sender: FDA-Public Use
  Company Number: PHHY2017AR120859

PATIENT
  Age: 64 Year
  Sex: Male

DRUGS (1)
  1. ENTRESTO [Suspect]
     Active Substance: SACUBITRIL\VALSARTAN
     Indication: CARDIAC FAILURE CHRONIC
     Dosage: 100 MG, UNK (REPORTED AS 2)
     Route: 065
     Dates: start: 20160719, end: 20160909

REACTIONS (15)
  - Fall [Unknown]
  - Gastric ulcer [Unknown]
  - Hypoxia [Unknown]
  - Agitation [Unknown]
  - Pallor [Unknown]
  - Septic shock [Unknown]
  - Weight decreased [Unknown]
  - Decreased immune responsiveness [Unknown]
  - Hypovolaemic shock [Fatal]
  - Cardiomegaly [Unknown]
  - Arrhythmia [Unknown]
  - Syncope [Unknown]
  - Myocardial infarction [Unknown]
  - Blood pressure decreased [Unknown]
  - Renal failure [Unknown]

NARRATIVE: CASE EVENT DATE: 20160909
